FAERS Safety Report 8638424 (Version 3)
Quarter: 2012Q4

REPORT INFORMATION
  Report Type: Report from Study
  Country: ES (occurrence: ES)
  Receive Date: 20120627
  Receipt Date: 20120910
  Transmission Date: 20130627
  Serious: Yes (Other)
  Sender: FDA-Public Use
  Company Number: ES-GLAXOSMITHKLINE-B0810724A

PATIENT
  Age: 74 Year
  Sex: Female

DRUGS (1)
  1. LAPATINIB [Suspect]
     Indication: BREAST CANCER
     Dosage: 1500MG Per day
     Route: 048
     Dates: start: 20080619, end: 20090619

REACTIONS (1)
  - Colon cancer [Not Recovered/Not Resolved]
